FAERS Safety Report 9029245 (Version 7)
Quarter: 2018Q4

REPORT INFORMATION
  Report Type: Spontaneous
  Country: FR (occurrence: FR)
  Receive Date: 20130125
  Receipt Date: 20181121
  Transmission Date: 20190205
  Serious: Yes (Hospitalization, Other)
  Sender: FDA-Public Use
  Company Number: FR-BAYER-2013-005911

PATIENT
  Age: 49 Year
  Sex: Female
  Weight: 69 kg

DRUGS (4)
  1. MIRENA [Suspect]
     Active Substance: LEVONORGESTREL
     Indication: CONTRACEPTION
     Dosage: 20 ?G, CONT
     Route: 015
     Dates: start: 2002, end: 200803
  2. MIRENA [Suspect]
     Active Substance: LEVONORGESTREL
     Indication: CONTRACEPTION
     Dosage: 20 ?G, CONT
     Route: 015
     Dates: start: 20080318, end: 20130114
  3. JASMINE [Suspect]
     Active Substance: DROSPIRENONE\ETHINYL ESTRADIOL
     Indication: OVARIAN CYST
     Dosage: UNK
     Route: 048
     Dates: start: 20110223, end: 201108
  4. JASMINE [Suspect]
     Active Substance: DROSPIRENONE\ETHINYL ESTRADIOL
     Indication: OVARIAN CYST
     Dosage: UNK
     Route: 048
     Dates: start: 200603, end: 200609

REACTIONS (20)
  - Neck pain [Recovered/Resolved with Sequelae]
  - Oophorectomy bilateral [None]
  - Cholecystectomy [None]
  - Ovarian cyst [Recovered/Resolved]
  - Product use in unapproved indication [None]
  - Device use issue [None]
  - Migraine [None]
  - Product monitoring error [None]
  - Ovarian cyst [Not Recovered/Not Resolved]
  - Ovarian cyst [None]
  - Product monitoring error [None]
  - Disturbance in attention [Not Recovered/Not Resolved]
  - Pelvic pain [None]
  - Intracranial venous sinus thrombosis [Recovered/Resolved with Sequelae]
  - Fatigue [Recovered/Resolved with Sequelae]
  - Off label use [None]
  - Headache [Recovered/Resolved with Sequelae]
  - Tinnitus [None]
  - Amenorrhoea [None]
  - Back pain [None]

NARRATIVE: CASE EVENT DATE: 2002
